FAERS Safety Report 19210652 (Version 1)
Quarter: 2021Q2

REPORT INFORMATION
  Report Type: Spontaneous
  Country: US (occurrence: US)
  Receive Date: 20210503
  Receipt Date: 20210503
  Transmission Date: 20210717
  Serious: No
  Sender: FDA-Public Use
  Company Number: None

PATIENT
  Age: 73 Year
  Sex: Male
  Weight: 91.26 kg

DRUGS (23)
  1. CAPECITABINE. [Suspect]
     Active Substance: CAPECITABINE
     Indication: BONE CANCER
     Dosage: ?          OTHER FREQUENCY:BID 14/21 DAYS;?
     Route: 048
     Dates: start: 20190212
  2. TEMOZOLOMIDE. [Suspect]
     Active Substance: TEMOZOLOMIDE
     Indication: BONE CANCER
     Dosage: ?          OTHER FREQUENCY:BID DAYS 10?14/28;?
     Route: 048
     Dates: start: 20190212
  3. BENEFIBER [Concomitant]
     Active Substance: STARCH, WHEAT
  4. GABAPENTIN. [Concomitant]
     Active Substance: GABAPENTIN
  5. HYDROMORPHONE [Concomitant]
     Active Substance: HYDROMORPHONE
  6. ROSUVASTATIN. [Concomitant]
     Active Substance: ROSUVASTATIN
  7. DULOXETINE. [Concomitant]
     Active Substance: DULOXETINE
  8. DURAGESIC [Concomitant]
     Active Substance: FENTANYL
  9. METOLAZONE. [Concomitant]
     Active Substance: METOLAZONE
  10. CENTRUM SILVER 50+ MEN [Concomitant]
  11. FUROSEMIDE. [Concomitant]
     Active Substance: FUROSEMIDE
  12. ONDANSETRON [Concomitant]
     Active Substance: ONDANSETRON
  13. ASPIRIN. [Concomitant]
     Active Substance: ASPIRIN
  14. CYANOCOBALAMIN. [Concomitant]
     Active Substance: CYANOCOBALAMIN
  15. FISH?OIL BURPLESS [Concomitant]
  16. TAMSULOSIN [Concomitant]
     Active Substance: TAMSULOSIN
  17. COENZYME Q10 [Concomitant]
     Active Substance: DIETARY SUPPLEMENT\UBIDECARENONE
  18. NAPROXEN. [Concomitant]
     Active Substance: NAPROXEN
  19. POTASSIUM [Concomitant]
     Active Substance: POTASSIUM
  20. CALCIUM [Concomitant]
     Active Substance: CALCIUM
  21. CIALIS [Concomitant]
     Active Substance: TADALAFIL
  22. LIDOCAINE?PRILOCAINE [Concomitant]
     Active Substance: LIDOCAINE\PRILOCAINE
  23. MOVANTIK [Concomitant]
     Active Substance: NALOXEGOL OXALATE

REACTIONS (3)
  - Skin laceration [None]
  - Blister [None]
  - Skin exfoliation [None]

NARRATIVE: CASE EVENT DATE: 20210503
